FAERS Safety Report 8942172 (Version 1)
Quarter: 2012Q4

REPORT INFORMATION
  Report Type: 
  Country: NL (occurrence: NL)
  Receive Date: 20121203
  Receipt Date: 20121203
  Transmission Date: 20130627
  Serious: Yes (Other)
  Sender: FDA-Public Use
  Company Number: NL-MERCK-1211NLD011933

PATIENT
  Age: 52 Year
  Sex: Female

DRUGS (3)
  1. PEGINTRON [Suspect]
     Indication: ESSENTIAL THROMBOCYTHAEMIA
     Dosage: strength: 50 mirogram/0.5 milliliter
     Route: 058
     Dates: start: 20120606
  2. TRILEPTAL [Concomitant]
  3. CARBASPIRIN CALCIUM [Concomitant]

REACTIONS (2)
  - Epilepsy [Not Recovered/Not Resolved]
  - Alopecia [Not Recovered/Not Resolved]
